FAERS Safety Report 9853884 (Version 1)
Quarter: 2014Q1

REPORT INFORMATION
  Report Type: Spontaneous
  Country: US (occurrence: US)
  Receive Date: 20140129
  Receipt Date: 20140129
  Transmission Date: 20141002
  Serious: Yes (Hospitalization, Other)
  Sender: FDA-Public Use
  Company Number: US-PFIZER INC-2014023271

PATIENT
  Age: 3 Year
  Sex: Female

DRUGS (3)
  1. METHYLPREDNISOLONE ACETATE [Suspect]
     Dosage: 8 MG OR 0.5 MG/KG
  2. DEXAMETHASONE SODIUM PHOSPHATE [Interacting]
     Indication: STRIDOR
     Dosage: FOUR DOSES
     Route: 042
  3. INTRAVENOUS IMMUNOGLOBULIN [Interacting]
     Indication: IMMUNE THROMBOCYTOPENIC PURPURA
     Dosage: 1 G/KG INFUSED OVER 6 HOURS

REACTIONS (3)
  - Drug interaction [Recovering/Resolving]
  - Haemorrhage intracranial [Recovering/Resolving]
  - Cerebral infarction [Recovering/Resolving]
